FAERS Safety Report 25505817 (Version 2)
Quarter: 2025Q3

REPORT INFORMATION
  Report Type: Spontaneous
  Country: EU (occurrence: EU)
  Receive Date: 20250702
  Receipt Date: 20250820
  Transmission Date: 20251021
  Serious: Yes (Hospitalization)
  Sender: PFIZER
  Company Number: None

PATIENT
  Age: 89 Year
  Sex: Male
  Weight: 60 kg

DRUGS (3)
  1. PIPERACILLIN SODIUM\TAZOBACTAM SODIUM [Suspect]
     Active Substance: PIPERACILLIN SODIUM\TAZOBACTAM SODIUM
     Indication: Pneumonitis aspiration
     Dosage: 4.5 G, 3X/DAY
     Route: 042
     Dates: start: 20250520, end: 20250610
  2. QUETIAPINE [Concomitant]
     Active Substance: QUETIAPINE
  3. PROMAZINA [Concomitant]
     Active Substance: PROMAZINE

REACTIONS (1)
  - Pancytopenia [Recovering/Resolving]

NARRATIVE: CASE EVENT DATE: 20250522
